FAERS Safety Report 6478157-0 (Version None)
Quarter: 2009Q4

REPORT INFORMATION
  Report Type: 
  Country: None (occurrence: None)
  Receive Date: 20091202
  Receipt Date: 20091118
  Transmission Date: 20100525
  Serious: Yes (Death)
  Sender: FDA-Public Use
  Company Number: JHP200900374

PATIENT
  Age: 21 Year
  Sex: Male

DRUGS (4)
  1. KETALAR [Suspect]
     Indication: DRUG ABUSE
  2. METHYLENEDIOXYMETHAMPHETAMINE(METHYLENEDIOXYMETHAMPHETAMINE) [Suspect]
     Indication: DRUG ABUSE
  3. NORKETAMINE () [Suspect]
  4. PHENYTOIN [Suspect]

REACTIONS (3)
  - COMPLETED SUICIDE [None]
  - DRUG SCREEN POSITIVE [None]
  - DRUG TOXICITY [None]
